FAERS Safety Report 7497632-3 (Version None)
Quarter: 2011Q2

REPORT INFORMATION
  Report Type: 
  Country: None (occurrence: None)
  Receive Date: 20110523
  Receipt Date: 20110518
  Transmission Date: 20111010
  Serious: Yes (Death)
  Sender: FDA-Public Use
  Company Number: US-PFIZER INC-2011107128

PATIENT
  Age: 57 Year
  Sex: Male
  Weight: 54.42 kg

DRUGS (7)
  1. DILANTIN-125 [Suspect]
     Indication: CONVULSION
     Dosage: 125 MG
     Route: 048
     Dates: start: 20110401
  2. KEPPRA [Concomitant]
     Indication: CONVULSION
     Dosage: 1750 MG, 2X/DAY
  3. DILANTIN-125 [Suspect]
     Indication: PARALYSIS
  4. LEVOXYL [Concomitant]
     Indication: HYPOTHYROIDISM
     Dosage: UNK
  5. MIRALAX [Concomitant]
     Indication: CONSTIPATION
     Dosage: 17 G, DAILY
  6. DILANTIN [Suspect]
     Indication: CONVULSION
     Dosage: 100 MG
     Route: 048
  7. DILANTIN [Suspect]
     Indication: PARALYSIS

REACTIONS (3)
  - DEATH [None]
  - INCORRECT ROUTE OF DRUG ADMINISTRATION [None]
  - DYSPHAGIA [None]
